FAERS Safety Report 17847144 (Version 1)
Quarter: 2020Q2

REPORT INFORMATION
  Report Type: Spontaneous
  Country: AU (occurrence: AU)
  Receive Date: 20200601
  Receipt Date: 20200601
  Transmission Date: 20200714
  Serious: Yes (Other)
  Sender: FDA-Public Use
  Company Number: AU-ROCHE-2611151

PATIENT
  Age: 47 Year
  Sex: Female

DRUGS (2)
  1. CLONAZEPAM. [Suspect]
     Active Substance: CLONAZEPAM
     Indication: SCHIZOPHRENIA
     Route: 065
  2. CLOZAPINE. [Concomitant]
     Active Substance: CLOZAPINE

REACTIONS (12)
  - Cerebral venous thrombosis [Unknown]
  - Gait disturbance [Unknown]
  - Schizophrenia [Unknown]
  - Salivary hypersecretion [Unknown]
  - Sedation complication [Unknown]
  - Overdose [Unknown]
  - Constipation [Unknown]
  - Chronic obstructive pulmonary disease [Unknown]
  - Dizziness [Unknown]
  - Fall [Unknown]
  - Hepatic steatosis [Unknown]
  - Urinary incontinence [Unknown]
